FAERS Safety Report 14055703 (Version 3)
Quarter: 2017Q4

REPORT INFORMATION
  Report Type: Report from Study
  Country: US (occurrence: US)
  Receive Date: 20171006
  Receipt Date: 20171031
  Transmission Date: 20180321
  Serious: No
  Sender: FDA-Public Use
  Company Number: US-AMGEN-USASL2017150188

PATIENT
  Age: 39 Year
  Sex: Female
  Weight: 57.6 kg

DRUGS (13)
  1. METHOTREXATE. [Concomitant]
     Active Substance: METHOTREXATE
     Dosage: 2.5 MG, QWK ( (TAKE 3 TABS BY MOUTH EVERY 7 DAYS)
     Route: 048
  2. HUMIRA [Concomitant]
     Active Substance: ADALIMUMAB
     Dosage: 40 MG, Q2WK
     Route: 058
     Dates: start: 20150219
  3. HUMIRA [Concomitant]
     Active Substance: ADALIMUMAB
     Dosage: 40 MG, QWK
     Route: 058
     Dates: start: 20160210
  4. FOLATE [Concomitant]
     Active Substance: FOLATE SODIUM
     Dosage: 1 MG, QD
     Route: 048
  5. VITAMIN D3 [Concomitant]
     Active Substance: CHOLECALCIFEROL
     Dosage: 1000 UNITS , QD
     Route: 048
  6. METHOTREXATE. [Concomitant]
     Active Substance: METHOTREXATE
     Dosage: 7.5 MG, QWK
     Route: 048
     Dates: start: 20141107
  7. ATIVAN [Concomitant]
     Active Substance: LORAZEPAM
     Dosage: 0.5 MG, TID(AS NEEDED)
     Route: 048
  8. MEDROL [Concomitant]
     Active Substance: METHYLPREDNISOLONE
     Dosage: 4 MG, UNK
     Route: 065
  9. ZOLOFT [Concomitant]
     Active Substance: SERTRALINE HYDROCHLORIDE
     Dosage: 100 MG, BID (AS NEEDED)
     Route: 048
  10. REMICADE [Concomitant]
     Active Substance: INFLIXIMAB
     Dosage: 300 MG, UNK (300 MG EVERY 8 WEEKS)
     Route: 042
  11. SYNTHROID [Concomitant]
     Active Substance: LEVOTHYROXINE SODIUM
     Indication: HYPOTHYROIDISM
     Dosage: 125 MUG, QD
     Route: 048
  12. ENBREL [Suspect]
     Active Substance: ETANERCEPT
     Indication: RHEUMATOID ARTHRITIS
     Dosage: 50 MG, QWK
     Route: 058
     Dates: start: 20161117, end: 20170411
  13. METHOTREXATE. [Concomitant]
     Active Substance: METHOTREXATE
     Dosage: 10 MG, QWK
     Dates: start: 20150226

REACTIONS (7)
  - Drug effect incomplete [Unknown]
  - Dysphonia [Unknown]
  - Neck pain [Unknown]
  - Night sweats [Unknown]
  - Pain [Not Recovered/Not Resolved]
  - Rotator cuff syndrome [Recovering/Resolving]
  - Hepatitis viral test positive [Unknown]

NARRATIVE: CASE EVENT DATE: 2017
